FAERS Safety Report 14184944 (Version 4)
Quarter: 2018Q1

REPORT INFORMATION
  Report Type: Spontaneous
  Country: US (occurrence: US)
  Receive Date: 20171113
  Receipt Date: 20180220
  Transmission Date: 20180508
  Serious: No
  Sender: FDA-Public Use
  Company Number: US-PFIZER INC-2017479596

PATIENT
  Age: 12 Year
  Sex: Male

DRUGS (1)
  1. QUILLIVANT XR [Suspect]
     Active Substance: METHYLPHENIDATE HYDROCHLORIDE
     Dosage: 20 MG, DAILY
     Route: 048

REACTIONS (4)
  - Weight increased [Unknown]
  - Fatigue [Unknown]
  - Drug effect decreased [Not Recovered/Not Resolved]
  - Somnolence [Unknown]
